FAERS Safety Report 7067301-2 (Version None)
Quarter: 2010Q4

REPORT INFORMATION
  Report Type: 
  Country: None (occurrence: None)
  Receive Date: 20101022
  Receipt Date: 20101022
  Transmission Date: 20110411
  Serious: Yes (Hospitalization, Other)
  Sender: FDA-Public Use
  Company Number: None

PATIENT
  Age: 29 Year
  Sex: Female
  Weight: 90.7194 kg

DRUGS (3)
  1. RISPERIDOL 3 MG [Suspect]
     Indication: PSYCHOTIC DISORDER
     Dosage: 3 MG 3 DAILY PO
     Route: 048
  2. SEROQUEL XR [Suspect]
     Indication: ANXIETY
     Dosage: 50 MG. 2 DAILY PO
     Route: 048
  3. SEROQUEL XR [Suspect]
     Indication: DEPRESSION
     Dosage: 50 MG. 2 DAILY PO
     Route: 048

REACTIONS (7)
  - AMENORRHOEA [None]
  - BALANCE DISORDER [None]
  - CONVULSION [None]
  - DRUG INEFFECTIVE [None]
  - GALACTORRHOEA [None]
  - TRISMUS [None]
  - WALKING AID USER [None]
